FAERS Safety Report 25759231 (Version 1)
Quarter: 2025Q3

REPORT INFORMATION
  Report Type: Spontaneous
  Country: US (occurrence: US)
  Receive Date: 20250904
  Receipt Date: 20250904
  Transmission Date: 20251021
  Serious: No
  Sender: ALKEM
  Company Number: US-ALKEM LABORATORIES LIMITED-US-ALKEM-2024-24968

PATIENT
  Age: 9 Year
  Sex: Male

DRUGS (2)
  1. MESALAMINE [Suspect]
     Active Substance: MESALAMINE
     Indication: Colitis ulcerative
     Dosage: 400 MILLIGRAM, TID
     Route: 065
  2. VANCOMYCIN [Concomitant]
     Active Substance: VANCOMYCIN
     Indication: Colitis ulcerative
     Dosage: 500 MILLIGRAM, TID
     Route: 048

REACTIONS (2)
  - Diarrhoea [Unknown]
  - Abdominal pain [Unknown]
